FAERS Safety Report 4866567-4 (Version None)
Quarter: 2005Q4

REPORT INFORMATION
  Report Type: 
  Country: None (occurrence: None)
  Receive Date: 20051227
  Receipt Date: 20051216
  Transmission Date: 20060501
  Serious: Yes (Other)
  Sender: FDA-Public Use
  Company Number: US-JNJFOC-20051204454

PATIENT
  Sex: Male
  Weight: 72.58 kg

DRUGS (6)
  1. DURAGESIC-100 [Suspect]
     Route: 062
  2. DURAGESIC-100 [Suspect]
     Route: 062
  3. DURAGESIC-100 [Suspect]
     Route: 062
  4. ALTACE [Concomitant]
     Route: 048
  5. ASPIRIN [Concomitant]
     Indication: PROPHYLAXIS
     Route: 048
  6. ZOCOR [Concomitant]
     Route: 048

REACTIONS (5)
  - CATARACT [None]
  - EYE INFECTION [None]
  - PHARMACEUTICAL PRODUCT COMPLAINT [None]
  - RETINAL DISORDER [None]
  - THERAPEUTIC RESPONSE DECREASED [None]
